FAERS Safety Report 9856201 (Version 3)
Quarter: 2014Q1

REPORT INFORMATION
  Report Type: Report from Study
  Country: CA (occurrence: CA)
  Receive Date: 20140130
  Receipt Date: 20140203
  Transmission Date: 20141002
  Serious: Yes (Other)
  Sender: FDA-Public Use
  Company Number: CA-ROCHE-1205740

PATIENT
  Age: 47 Year
  Sex: Female

DRUGS (6)
  1. AVASTIN [Suspect]
     Indication: OVARIAN CANCER
     Route: 042
     Dates: start: 20130320
  2. AVASTIN [Suspect]
     Route: 042
     Dates: start: 20130523
  3. BENADRYL (CANADA) [Concomitant]
  4. DEXAMETHASONE [Concomitant]
  5. VENLAFAXINE [Concomitant]
  6. ATIVAN [Concomitant]

REACTIONS (9)
  - Irritable bowel syndrome [Not Recovered/Not Resolved]
  - Paraesthesia oral [Recovered/Resolved]
  - Pharyngitis [Unknown]
  - Oropharyngeal pain [Not Recovered/Not Resolved]
  - Gastrooesophageal reflux disease [Not Recovered/Not Resolved]
  - Cough [Not Recovered/Not Resolved]
  - Vomiting [Not Recovered/Not Resolved]
  - Off label use [Unknown]
  - Dyspepsia [Unknown]
